FAERS Safety Report 4436898-0 (Version None)
Quarter: 2004Q3

REPORT INFORMATION
  Report Type: 
  Country: None (occurrence: None)
  Receive Date: 20040823
  Receipt Date: 20040816
  Transmission Date: 20050211
  Serious: Yes (Other)
  Sender: FDA-Public Use
  Company Number: HQWYE508019APR04

PATIENT
  Age: 22 Year
  Sex: Male

DRUGS (1)
  1. BENEFIX [Suspect]
     Indication: FACTOR IX DEFICIENCY
     Dosage: 55 IU/KG (1510-4770 UNITS ON DEMAND)
     Route: 042
     Dates: start: 20021112, end: 20030226

REACTIONS (9)
  - CONTUSION [None]
  - DRUG INEFFECTIVE [None]
  - HAEMARTHROSIS [None]
  - INFUSION SITE PRURITUS [None]
  - LIMB INJURY [None]
  - MEDICATION ERROR [None]
  - MYALGIA [None]
  - PAIN IN EXTREMITY [None]
  - SOFT TISSUE HAEMORRHAGE [None]
